FAERS Safety Report 6582561-X (Version None)
Quarter: 2010Q1

REPORT INFORMATION
  Report Type: 
  Country: None (occurrence: None)
  Receive Date: 20100203
  Receipt Date: 20100119
  Transmission Date: 20100710
  Serious: Yes (Other)
  Sender: FDA-Public Use
  Company Number: 2009S1003965

PATIENT
  Age: 70 Year
  Sex: Female

DRUGS (8)
  1. EZ PREP KIT [Suspect]
     Indication: COLONOSCOPY
     Dosage: 75 ML;TOTAL; PO
     Route: 048
     Dates: start: 20010204, end: 20010204
  2. SYNTHROID [Concomitant]
  3. CORGARD [Concomitant]
  4. LOTENSIN /00909102/ [Concomitant]
  5. HYDROCHLOROTHIAZIDE [Concomitant]
  6. ASPIRIN [Concomitant]
  7. GLUCOTROL [Concomitant]
  8. URISED [Concomitant]

REACTIONS (1)
  - RENAL IMPAIRMENT [None]
